FAERS Safety Report 5171943-9 (Version None)
Quarter: 2006Q4

REPORT INFORMATION
  Report Type: 
  Country: None (occurrence: None)
  Receive Date: 20061205
  Receipt Date: 20061128
  Transmission Date: 20070319
  Serious: Yes (Death)
  Sender: FDA-Public Use
  Company Number: 2006SP007310

PATIENT
  Age: 53 Year
  Sex: Male

DRUGS (2)
  1. PROVENTIL [Suspect]
     Indication: DRUG USE FOR UNKNOWN INDICATION
  2. ALBUTEROL SULATE [Suspect]

REACTIONS (1)
  - DEATH [None]
